FAERS Safety Report 5685018-3 (Version None)
Quarter: 2008Q1

REPORT INFORMATION
  Report Type: 
  Country: None (occurrence: None)
  Receive Date: 20080328
  Receipt Date: 19970729
  Transmission Date: 20080703
  Serious: Yes (Death)
  Sender: FDA-Public Use
  Company Number: CH-ROCHE-84542

PATIENT
  Age: 30 Year
  Sex: Male

DRUGS (3)
  1. LARIAM [Suspect]
     Indication: MALARIA PROPHYLAXIS
     Route: 048
     Dates: start: 19961218
  2. NEO-CITRAN [Concomitant]
     Route: 048
     Dates: start: 19970122, end: 19970122
  3. FLUNITRAZEPAM [Concomitant]
     Route: 065

REACTIONS (2)
  - DEATH [None]
  - NASOPHARYNGITIS [None]
